FAERS Safety Report 6671250-9 (Version None)
Quarter: 2010Q2

REPORT INFORMATION
  Report Type: 
  Country: None (occurrence: None)
  Receive Date: 20100407
  Receipt Date: 20100401
  Transmission Date: 20101027
  Serious: Yes (Death)
  Sender: FDA-Public Use
  Company Number: NL-ROCHE-692389

PATIENT
  Sex: Female
  Weight: 50 kg

DRUGS (4)
  1. CAPECITABINE [Suspect]
     Indication: BREAST CANCER
     Dosage: FREQUENCY: 2X/DAY FROM 1 TO 14, LAST DOSE PRIOR TO SAE: 9 MARCH 2010.
     Route: 048
     Dates: start: 20100113
  2. TAXOTERE [Suspect]
     Indication: BREAST CANCER
     Dosage: MOST RECENT DOSE GIVEN ON 24 FEBRUARY 2010
     Route: 042
     Dates: start: 20100113
  3. FUROSEMIDE [Concomitant]
     Indication: HYPERTENSION
     Dosage: FREQUENCY: 1DD.
     Route: 048
  4. VALSARTAN [Concomitant]
     Indication: HYPERTENSION
     Dosage: FREQUENCY REPORTED AS 1DD.
     Route: 048

REACTIONS (2)
  - DEATH [None]
  - DYSPNOEA [None]
